FAERS Safety Report 4431097-0 (Version None)
Quarter: 2004Q3

REPORT INFORMATION
  Report Type: 
  Country: None (occurrence: None)
  Receive Date: 20040823
  Receipt Date: 20040823
  Transmission Date: 20050211
  Serious: Yes (Other)
  Sender: FDA-Public Use
  Company Number: None

PATIENT
  Sex: Female
  Weight: 74.8435 kg

DRUGS (4)
  1. ANCEF [Suspect]
     Indication: URINARY TRACT INFECTION
     Dosage: 2 GM IVPB Q 8 HRS X 4
     Route: 042
     Dates: start: 20040820, end: 20040821
  2. ANCEF [Suspect]
     Indication: WHITE BLOOD CELL COUNT INCREASED
     Dosage: 2 GM IVPB Q 8 HRS X 4
     Route: 042
     Dates: start: 20040820, end: 20040821
  3. LR [Concomitant]
  4. PITOCID [Concomitant]

REACTIONS (4)
  - ASTHMA [None]
  - ECZEMA [None]
  - RASH ERYTHEMATOUS [None]
  - RASH MACULO-PAPULAR [None]
